FAERS Safety Report 11414669 (Version 1)
Quarter: 2015Q3

REPORT INFORMATION
  Report Type: Spontaneous
  Country: US (occurrence: None)
  Receive Date: 20150821
  Receipt Date: 20150821
  Transmission Date: 20151125
  Serious: Yes (Other)
  Sender: FDA-Public Use
  Company Number: DEP_09248_2015

PATIENT
  Age: 50 Year
  Sex: Male
  Weight: 76.66 kg

DRUGS (4)
  1. NUCYNTA [Suspect]
     Active Substance: TAPENTADOL HYDROCHLORIDE
     Indication: BREAKTHROUGH PAIN
     Dosage: (100 MG PRN ORAL)
     Route: 048
     Dates: end: 2015
  2. NUCYNTA ER [Suspect]
     Active Substance: TAPENTADOL HYDROCHLORIDE
     Indication: ARTHRITIS
     Route: 048
     Dates: start: 201408, end: 2015
  3. NUCYNTA [Suspect]
     Active Substance: TAPENTADOL HYDROCHLORIDE
     Indication: ARTHRITIS
     Dosage: (100 MG PRN ORAL)
     Route: 048
     Dates: end: 2015
  4. DICLOFENAC [Concomitant]
     Active Substance: DICLOFENAC

REACTIONS (2)
  - Intervertebral disc protrusion [None]
  - Drug prescribing error [None]

NARRATIVE: CASE EVENT DATE: 201408
